FAERS Safety Report 17142306 (Version 1)
Quarter: 2019Q4

REPORT INFORMATION
  Report Type: Report from Study
  Country: US (occurrence: US)
  Receive Date: 20191211
  Receipt Date: 20191211
  Transmission Date: 20200122
  Serious: No
  Sender: FDA-Public Use
  Company Number: US-INCYTE CORPORATION-2019IN010823

PATIENT

DRUGS (1)
  1. JAKAFI [Suspect]
     Active Substance: RUXOLITINIB
     Route: 065

REACTIONS (5)
  - Mobility decreased [Unknown]
  - Blood glucose increased [Unknown]
  - Malaise [Unknown]
  - Weight increased [Unknown]
  - Back pain [Unknown]
